FAERS Safety Report 23783879 (Version 1)
Quarter: 2024Q2

REPORT INFORMATION
  Report Type: Spontaneous
  Country: US (occurrence: None)
  Receive Date: 20240424
  Receipt Date: 20240424
  Transmission Date: 20240716
  Serious: No
  Sender: FDA-Public Use
  Company Number: None

PATIENT
  Age: 28 Year
  Sex: Male
  Weight: 115.67 kg

DRUGS (4)
  1. TALTZ [Suspect]
     Active Substance: IXEKIZUMAB
     Indication: Ankylosing spondylitis
     Dosage: OTHER QUANTITY : 80MG (1 PEN);?FREQUENCY : MONTHLY;?
     Route: 058
     Dates: start: 202308
  2. TALTZ [Suspect]
     Active Substance: IXEKIZUMAB
     Indication: Psoriatic arthropathy
  3. TALTZ [Suspect]
     Active Substance: IXEKIZUMAB
     Indication: Psoriasis
  4. TALTZ [Suspect]
     Active Substance: IXEKIZUMAB
     Indication: Ankylosing spondylitis

REACTIONS (3)
  - Lumbar puncture [None]
  - Procedural complication [None]
  - Impaired healing [None]
